FAERS Safety Report 22639052 (Version 6)
Quarter: 2023Q4

REPORT INFORMATION
  Report Type: Spontaneous
  Country: US (occurrence: US)
  Receive Date: 20230626
  Receipt Date: 20231120
  Transmission Date: 20240110
  Serious: Yes (Hospitalization, Other)
  Sender: FDA-Public Use
  Company Number: US-ALXN-A202308279

PATIENT
  Age: 64 Year
  Sex: Male
  Weight: 85.986 kg

DRUGS (1)
  1. ULTOMIRIS [Suspect]
     Active Substance: RAVULIZUMAB-CWVZ
     Indication: Atypical haemolytic uraemic syndrome
     Dosage: 2700 MG, UNK
     Route: 042
     Dates: start: 20230607

REACTIONS (3)
  - Road traffic accident [Unknown]
  - Subdural haematoma [Unknown]
  - Injury [Unknown]

NARRATIVE: CASE EVENT DATE: 20230620
